FAERS Safety Report 13634945 (Version 1)
Quarter: 2017Q2

REPORT INFORMATION
  Report Type: Spontaneous
  Country: US (occurrence: US)
  Receive Date: 20170531
  Receipt Date: 20170531
  Transmission Date: 20170830
  Serious: No
  Sender: FDA-Public Use
  Company Number: US-ASTELLAS-1671295

PATIENT
  Sex: Female

DRUGS (6)
  1. TUMS [Concomitant]
     Active Substance: CALCIUM CARBONATE
  2. LISINOPRIL. [Concomitant]
     Active Substance: LISINOPRIL
  3. TARCEVA [Suspect]
     Active Substance: ERLOTINIB HYDROCHLORIDE
     Indication: LUNG NEOPLASM MALIGNANT
     Route: 048
     Dates: start: 20151104
  4. TARCEVA [Suspect]
     Active Substance: ERLOTINIB HYDROCHLORIDE
     Route: 048
     Dates: start: 20151216
  5. CLOPIDOGREL [Concomitant]
     Active Substance: CLOPIDOGREL BISULFATE
  6. ATIVAN [Concomitant]
     Active Substance: LORAZEPAM

REACTIONS (9)
  - Influenza like illness [Unknown]
  - Rash [Unknown]
  - Dry skin [Unknown]
  - Eye swelling [Unknown]
  - Skin exfoliation [Unknown]
  - Diarrhoea [Unknown]
  - Nausea [Unknown]
  - Oral mucosal blistering [Unknown]
  - Gastrooesophageal reflux disease [Unknown]
